FAERS Safety Report 6677631-1 (Version None)
Quarter: 2010Q2

REPORT INFORMATION
  Report Type: 
  Country: None (occurrence: None)
  Receive Date: 20100412
  Receipt Date: 20100317
  Transmission Date: 20101027
  Serious: No
  Sender: FDA-Public Use
  Company Number: US-ALEXION-A201000315

PATIENT
  Sex: Male

DRUGS (4)
  1. SOLIRIS [Suspect]
     Indication: PAROXYSMAL NOCTURNAL HAEMOGLOBINURIA
     Dosage: 600 MG, QW
     Route: 042
     Dates: start: 20080506, end: 20080527
  2. SOLIRIS [Suspect]
     Dosage: 900 MG, UNK
     Route: 042
     Dates: start: 20080101
  3. COUMADIN [Concomitant]
     Indication: THROMBOSIS
     Dosage: 5 MG, QD
     Route: 048
  4. LOVENOX [Concomitant]
     Indication: THROMBOSIS
     Dosage: 100 MG, BID
     Route: 058

REACTIONS (2)
  - GINGIVITIS [None]
  - SINUSITIS [None]
